FAERS Safety Report 16666840 (Version 1)
Quarter: 2019Q3

REPORT INFORMATION
  Report Type: Spontaneous
  Country: US (occurrence: US)
  Receive Date: 20190805
  Receipt Date: 20190805
  Transmission Date: 20191004
  Serious: No
  Sender: FDA-Public Use
  Company Number: US-ACCORD-108093

PATIENT
  Age: 65 Year
  Sex: Female

DRUGS (1)
  1. ANASTROZOLE. [Suspect]
     Active Substance: ANASTROZOLE
     Indication: BREAST CANCER
     Dosage: STRENGTH: 1 MG
     Route: 048

REACTIONS (3)
  - Somnolence [Not Recovered/Not Resolved]
  - Product taste abnormal [Unknown]
  - Heart rate increased [Not Recovered/Not Resolved]
